FAERS Safety Report 4332213-1 (Version None)
Quarter: 2004Q1

REPORT INFORMATION
  Report Type: 
  Country: None (occurrence: None)
  Receive Date: 20040331
  Receipt Date: 20040317
  Transmission Date: 20041129
  Serious: Yes (Life-Threatening)
  Sender: FDA-Public Use
  Company Number: 2004011446

PATIENT
  Age: 50 Year
  Sex: Female

DRUGS (7)
  1. ZOLOFT [Suspect]
     Indication: DEPRESSION
     Dosage: 50 MG, (DAILY), ORAL
     Route: 048
     Dates: start: 20031218, end: 20031220
  2. ALL OTHER THERAPEUTIC PRODUCTS [Concomitant]
  3. ZOLPIDEM TARTRATE [Concomitant]
  4. NICOTINAMIDE (NICOTINAMIDE) [Concomitant]
  5. OXAZEPAM [Concomitant]
  6. POTASSIUM CHLORIDE [Concomitant]
  7. BISELECT (HYDROCHLOROTHIAZIDE, BISOPROLOL FUMARATE) [Concomitant]

REACTIONS (2)
  - ANGIONEUROTIC OEDEMA [None]
  - CIRRHOSIS ALCOHOLIC [None]
